FAERS Safety Report 8021932-1 (Version None)
Quarter: 2011Q4

REPORT INFORMATION
  Report Type: 
  Country: None (occurrence: None)
  Receive Date: 20111229
  Receipt Date: 20111219
  Transmission Date: 20120403
  Serious: Yes (Other)
  Sender: FDA-Public Use
  Company Number: MSTR-NO-1112S-0272

PATIENT
  Age: 79 Year
  Sex: Male
  Weight: 72 kg

DRUGS (4)
  1. ZOLEDRONIC ACID HYDRATE [Concomitant]
  2. METASTRON [Suspect]
     Indication: METASTATIC PAIN
     Dosage: 3.8 MBQ, SINGLE DOSE, INTRAVENOUS
     Route: 042
     Dates: start: 20100106, end: 20100106
  3. METASTRON [Suspect]
     Indication: METASTATIC PAIN
     Dosage: 3.8 MBQ, SINGLE DOSE, INTRAVENOUS
     Route: 042
     Dates: start: 20090623, end: 20090623
  4. OXYCODONE HYDROCHLORIDE [Concomitant]

REACTIONS (1)
  - ANAEMIA [None]
